FAERS Safety Report 16434352 (Version 1)
Quarter: 2019Q2

REPORT INFORMATION
  Report Type: Spontaneous
  Country: US (occurrence: US)
  Receive Date: 20190614
  Receipt Date: 20190614
  Transmission Date: 20190711
  Serious: Yes (Other)
  Sender: FDA-Public Use
  Company Number: US-ELI_LILLY_AND_COMPANY-US201906004174

PATIENT
  Sex: Female

DRUGS (1)
  1. HUMALOG MIX50/50 [Suspect]
     Active Substance: INSULIN LISPRO
     Indication: TYPE 2 DIABETES MELLITUS
     Dosage: 44-50 U, TID (SLIDING SCALE)
     Route: 065
     Dates: start: 2009

REACTIONS (3)
  - Bone cancer [Recovering/Resolving]
  - Blood glucose increased [Not Recovered/Not Resolved]
  - Breast cancer metastatic [Recovering/Resolving]

NARRATIVE: CASE EVENT DATE: 2017
